FAERS Safety Report 9221882 (Version 1)
Quarter: 2013Q2

REPORT INFORMATION
  Report Type: Spontaneous
  Country: US (occurrence: None)
  Receive Date: 20130410
  Receipt Date: 20130410
  Transmission Date: 20140414
  Serious: Yes (Death)
  Sender: FDA-Public Use
  Company Number: None

PATIENT
  Age: 92 Year
  Sex: Female

DRUGS (1)
  1. WARFARIN [Suspect]
     Indication: ATRIAL FIBRILLATION
     Dosage: WARFARIN 4.5 MG DAILY PO?YEARS
     Route: 048

REACTIONS (3)
  - Mental status changes [None]
  - Head injury [None]
  - Traumatic intracranial haemorrhage [None]
